FAERS Safety Report 17632415 (Version 1)
Quarter: 2020Q2

REPORT INFORMATION
  Report Type: Spontaneous
  Country: GT (occurrence: GT)
  Receive Date: 20200406
  Receipt Date: 20200406
  Transmission Date: 20200713
  Serious: Yes (Disabling)
  Sender: FDA-Public Use
  Company Number: GT-009507513-2004GTM001162

PATIENT
  Age: 79 Year
  Sex: Male

DRUGS (1)
  1. KEYTRUDA [Suspect]
     Active Substance: PEMBROLIZUMAB
     Indication: PANCREATIC CARCINOMA METASTATIC
     Dosage: 2ND CYCLE
     Dates: start: 202001

REACTIONS (5)
  - Hypoalbuminaemia [Unknown]
  - Decreased appetite [Unknown]
  - Off label use [Unknown]
  - Depression [Unknown]
  - Keratitis [Unknown]

NARRATIVE: CASE EVENT DATE: 2020
